FAERS Safety Report 19121054 (Version 4)
Quarter: 2022Q3

REPORT INFORMATION
  Report Type: Spontaneous
  Country: US (occurrence: US)
  Receive Date: 20210412
  Receipt Date: 20220923
  Transmission Date: 20221027
  Serious: No
  Sender: FDA-Public Use
  Company Number: US-SA-SAC20210409000441

PATIENT
  Age: 35 Year
  Sex: Female

DRUGS (2)
  1. FABRAZYME [Suspect]
     Active Substance: AGALSIDASE BETA
     Indication: Fabry^s disease
     Dosage: 70 MG, QOW
     Route: 041
     Dates: start: 201612
  2. FABRAZYME [Suspect]
     Active Substance: AGALSIDASE BETA
     Dosage: 70 MG, QOW
     Route: 041
     Dates: start: 20210406

REACTIONS (14)
  - Angiokeratoma [Unknown]
  - Temperature intolerance [Unknown]
  - Anhidrosis [Unknown]
  - Condition aggravated [Unknown]
  - Sensory disturbance [Unknown]
  - Abdominal discomfort [Unknown]
  - Burning sensation [Unknown]
  - Paraesthesia [Unknown]
  - Pain [Unknown]
  - Abdominal pain upper [Unknown]
  - Nausea [Unknown]
  - Vomiting [Unknown]
  - Product dose omission issue [Unknown]
  - Inappropriate schedule of product administration [Unknown]

NARRATIVE: CASE EVENT DATE: 20210608
